FAERS Safety Report 8326707-1 (Version None)
Quarter: 2012Q2

REPORT INFORMATION
  Report Type: 
  Country: None (occurrence: None)
  Receive Date: 20120501
  Receipt Date: 20120416
  Transmission Date: 20120825
  Serious: Yes (Other)
  Sender: FDA-Public Use
  Company Number: CHPA2012US009421

PATIENT
  Sex: Female

DRUGS (1)
  1. EXCEDRIN TENSION HEADACHE CAPLETS [Suspect]
     Indication: HEADACHE
     Dosage: UNK DF, PRN
     Route: 048

REACTIONS (7)
  - DYSPEPSIA [None]
  - ENDOMETRIOSIS [None]
  - NERVE INJURY [None]
  - INTERVERTEBRAL DISC PROTRUSION [None]
  - SCAR [None]
  - JOINT RANGE OF MOTION DECREASED [None]
  - BACK PAIN [None]
